FAERS Safety Report 14335979 (Version 2)
Quarter: 2018Q1

REPORT INFORMATION
  Report Type: Spontaneous
  Country: CH (occurrence: CH)
  Receive Date: 20171229
  Receipt Date: 20180124
  Transmission Date: 20180509
  Serious: Yes (Death, Other)
  Sender: FDA-Public Use
  Company Number: CH-MERCK KGAA-2037999

PATIENT
  Age: 32 Year
  Sex: Female

DRUGS (2)
  1. IRON [Concomitant]
     Active Substance: IRON
  2. NOVOTHYROX [Suspect]
     Active Substance: LEVOTHYROXINE SODIUM
     Indication: HYPOTHYROIDISM
     Route: 048
     Dates: start: 201607

REACTIONS (9)
  - Derealisation [None]
  - Anxiety [None]
  - Hyperthyroidism [Recovered/Resolved]
  - Depersonalisation/derealisation disorder [None]
  - Completed suicide [Fatal]
  - Paranoia [None]
  - Psychomotor retardation [None]
  - Insomnia [None]
  - Mutism [None]

NARRATIVE: CASE EVENT DATE: 201707
